FAERS Safety Report 8681968 (Version 2)
Quarter: 2012Q4

REPORT INFORMATION
  Report Type: Report from Study
  Country: DE (occurrence: DE)
  Receive Date: 20120725
  Receipt Date: 20121003
  Transmission Date: 20130627
  Serious: Yes (Death, Hospitalization)
  Sender: FDA-Public Use
  Company Number: DE-ROCHE-1090472

PATIENT
  Age: 68 Year
  Sex: Male
  Weight: 95.5 kg

DRUGS (10)
  1. MIRCERA [Suspect]
     Indication: NEPHROGENIC ANAEMIA
     Dosage: Date of last dose prior to SAE: 22/Jan/2012
     Route: 058
     Dates: start: 20110713
  2. PREDNISOLON [Concomitant]
     Route: 065
     Dates: start: 20090831
  3. METOPROLOL [Concomitant]
     Route: 065
     Dates: start: 20050315
  4. ISOSORBIDE DINITRATE [Concomitant]
     Route: 065
     Dates: start: 20050315
  5. EPROSARTAN [Concomitant]
     Route: 065
     Dates: start: 20050315
  6. ALFACALCIDOL [Concomitant]
     Route: 065
     Dates: start: 20090617
  7. TORSEMIDE [Concomitant]
     Route: 065
     Dates: start: 20090318
  8. EZETIMIBE [Concomitant]
     Route: 065
     Dates: start: 20050315
  9. SIMVASTATIN [Concomitant]
     Route: 065
     Dates: start: 20050315
  10. AMLODIPIN [Concomitant]
     Route: 065
     Dates: start: 20050315

REACTIONS (9)
  - Myocardial infarction [Fatal]
  - Cardiogenic shock [Fatal]
  - Pneumonia [Unknown]
  - Sepsis [Unknown]
  - Systemic inflammatory response syndrome [Unknown]
  - Liver disorder [Unknown]
  - Hyperammonaemia [Unknown]
  - Hepatic encephalopathy [Unknown]
  - Renal failure [Unknown]
